FAERS Safety Report 10932693 (Version 1)
Quarter: 2015Q1

REPORT INFORMATION
  Report Type: Spontaneous
  Country: US (occurrence: None)
  Receive Date: 20150319
  Receipt Date: 20150319
  Transmission Date: 20150721
  Serious: No
  Sender: FDA-Public Use
  Company Number: None

PATIENT
  Age: 81 Year
  Sex: Male

DRUGS (6)
  1. PREDNISONE. [Concomitant]
     Active Substance: PREDNISONE
  2. XGEVA [Concomitant]
     Active Substance: DENOSUMAB
  3. LUPRON [Concomitant]
     Active Substance: LEUPROLIDE ACETATE
  4. VERAPAMIL [Concomitant]
     Active Substance: VERAPAMIL HYDROCHLORIDE
  5. ZYTIGA [Suspect]
     Active Substance: ABIRATERONE ACETATE
     Indication: PROSTATE CANCER
     Dosage: 4 TABLETS DAILY
     Route: 048
     Dates: start: 20150219, end: 20150317
  6. BENAPSAPRIL [Concomitant]

REACTIONS (3)
  - Aspartate aminotransferase increased [None]
  - Liver injury [None]
  - Alanine aminotransferase increased [None]

NARRATIVE: CASE EVENT DATE: 20150317
